FAERS Safety Report 20612617 (Version 2)
Quarter: 2022Q2

REPORT INFORMATION
  Report Type: Spontaneous
  Country: None (occurrence: US)
  Receive Date: 20220318
  Receipt Date: 20220406
  Transmission Date: 20220721
  Serious: Yes (Death, Other)
  Sender: FDA-Public Use
  Company Number: US-Vero Biotech-2126917

PATIENT
  Sex: Male

DRUGS (2)
  1. GENOSYL [Suspect]
     Active Substance: NITRIC OXIDE
     Indication: COVID-19
     Route: 055
  2. GENOSYL [Suspect]
     Active Substance: NITRIC OXIDE

REACTIONS (3)
  - Respiration abnormal [Recovered/Resolved]
  - Death [Fatal]
  - Respiratory failure [Not Recovered/Not Resolved]

NARRATIVE: CASE EVENT DATE: 20220220
